FAERS Safety Report 7720383-4 (Version None)
Quarter: 2011Q3

REPORT INFORMATION
  Report Type: 
  Country: None (occurrence: None)
  Receive Date: 20110830
  Receipt Date: 20110830
  Transmission Date: 20111222
  Serious: Yes (Other)
  Sender: FDA-Public Use
  Company Number: None

PATIENT
  Age: 65 Year
  Sex: Male
  Weight: 74.8435 kg

DRUGS (1)
  1. KETOPROFEN [Suspect]
     Indication: ANKYLOSING SPONDYLITIS
     Dosage: 50 MG  3/DAY
     Dates: start: 20110727, end: 20110731

REACTIONS (4)
  - NO THERAPEUTIC RESPONSE [None]
  - ARTHRITIS [None]
  - HERPES ZOSTER [None]
  - DRUG EFFECT DECREASED [None]
